FAERS Safety Report 6899291-7 (Version None)
Quarter: 2010Q3

REPORT INFORMATION
  Report Type: 
  Country: None (occurrence: None)
  Receive Date: 20100802
  Receipt Date: 20080915
  Transmission Date: 20110219
  Serious: Yes (Disabling, Other)
  Sender: FDA-Public Use
  Company Number: US-PFIZER INC-2007107216

PATIENT
  Sex: Female
  Weight: 68 kg

DRUGS (7)
  1. LYRICA [Suspect]
     Indication: FIBROMYALGIA
     Dates: start: 20070102
  2. FENTANYL [Concomitant]
  3. VICODIN [Concomitant]
  4. PERCOCET [Concomitant]
  5. TYLENOL [Concomitant]
  6. ORUDIS [Concomitant]
  7. CYMBALTA [Concomitant]

REACTIONS (6)
  - DISABILITY [None]
  - GAIT DISTURBANCE [None]
  - INFLUENZA [None]
  - MIGRAINE [None]
  - PAIN [None]
  - PYREXIA [None]
